FAERS Safety Report 4741091-8 (Version None)
Quarter: 2005Q3

REPORT INFORMATION
  Report Type: 
  Country: None (occurrence: None)
  Receive Date: 20050729
  Receipt Date: 20050302
  Transmission Date: 20060218
  Serious: Yes (Other)
  Sender: FDA-Public Use
  Company Number: 2005S1000908

PATIENT
  Age: 51 Year
  Sex: Male

DRUGS (6)
  1. APOMORPHINE HYDROCHLORIDE (APOMORPHINE HYDROCHLORIDE ) (10 MG/ML) [Suspect]
     Indication: PARKINSON'S DISEASE
     Dosage: QD;SC
     Dates: start: 20041101
  2. CARBIDOPA/LEVODOPA/ENTACAPONE [Concomitant]
  3. CARBIDOPA AND LEVODOPA [Concomitant]
  4. ROPINIROLE [Concomitant]
  5. FUROSEMIDE/AMILORIDE HYDROCHLORIDE [Concomitant]
  6. TAMSULOSIN [Concomitant]

REACTIONS (3)
  - INJECTION SITE ERYTHEMA [None]
  - INJECTION SITE PAIN [None]
  - RASH [None]
